FAERS Safety Report 10595494 (Version 1)
Quarter: 2014Q4

REPORT INFORMATION
  Report Type: Spontaneous
  Country: US (occurrence: None)
  Receive Date: 20141118
  Receipt Date: 20141118
  Transmission Date: 20150529
  Serious: Yes (Other)
  Sender: FDA-Public Use
  Company Number: 2014-US-014758

PATIENT
  Age: 58 Year
  Sex: Male

DRUGS (1)
  1. XYREM [Suspect]
     Active Substance: SODIUM OXYBATE
     Indication: NARCOLEPSY
     Route: 048
     Dates: start: 200901

REACTIONS (8)
  - Depression [None]
  - Homocysteine urine present [None]
  - Energy increased [None]
  - Prostate cancer [None]
  - Gout [None]
  - Hypertension [None]
  - Insulin resistance [None]
  - Weight decreased [None]

NARRATIVE: CASE EVENT DATE: 201401
